FAERS Safety Report 18861687 (Version 1)
Quarter: 2021Q1

REPORT INFORMATION
  Report Type: Report from Study
  Country: US (occurrence: US)
  Receive Date: 20210208
  Receipt Date: 20210208
  Transmission Date: 20210420
  Serious: No
  Sender: FDA-Public Use
  Company Number: NVSC2021US020088

PATIENT
  Sex: Female

DRUGS (2)
  1. COSENTYX [Suspect]
     Active Substance: SECUKINUMAB
     Indication: PRODUCT USED FOR UNKNOWN INDICATION
     Dosage: 150 MG, QMO (2 PENS 300 MG)
     Route: 058
  2. CHLORASEPTIC SORE THROAT [Concomitant]
     Active Substance: PHENOL
     Indication: PRODUCT USED FOR UNKNOWN INDICATION
     Dosage: UNK
     Route: 065

REACTIONS (7)
  - Pain [Unknown]
  - Oropharyngeal pain [Unknown]
  - Injection site bruising [Recovered/Resolved]
  - Nasal congestion [Unknown]
  - Injection site pain [Unknown]
  - Seasonal allergy [Unknown]
  - Snoring [Unknown]
